FAERS Safety Report 11886173 (Version 2)
Quarter: 2016Q1

REPORT INFORMATION
  Report Type: Spontaneous
  Country: AU (occurrence: AU)
  Receive Date: 20160104
  Receipt Date: 20160216
  Transmission Date: 20160526
  Serious: Yes (Other)
  Sender: FDA-Public Use
  Company Number: AU-CELGENE-AUS-2015125001

PATIENT
  Age: 80 Year
  Sex: Male
  Weight: 63 kg

DRUGS (8)
  1. ATORVASTATIN [Concomitant]
     Active Substance: ATORVASTATIN
     Indication: HYPERCHOLESTEROLAEMIA
     Route: 065
  2. ASPIRIN. [Concomitant]
     Active Substance: ASPIRIN
     Indication: ANTICOAGULANT THERAPY
     Route: 065
  3. DEXAMETHASONE. [Concomitant]
     Active Substance: DEXAMETHASONE
     Indication: PREMEDICATION
     Route: 065
  4. NIFEDIPINE. [Concomitant]
     Active Substance: NIFEDIPINE
     Indication: HYPERTENSION
     Route: 065
  5. LISINOPRIL. [Concomitant]
     Active Substance: LISINOPRIL
     Indication: HYPERTENSION
     Route: 065
  6. ONDANSETRON [Concomitant]
     Active Substance: ONDANSETRON
     Indication: PREMEDICATION
     Dosage: 5 MILLIGRAM
     Route: 065
  7. AZACITIDINE INJECTABLE [Suspect]
     Active Substance: AZACITIDINE
     Indication: CHRONIC MYELOMONOCYTIC LEUKAEMIA
     Route: 065
     Dates: start: 20150727, end: 201512
  8. SOLIFENACIN SUCCINATE. [Concomitant]
     Active Substance: SOLIFENACIN SUCCINATE
     Indication: URINARY TRACT DISORDER
     Route: 065

REACTIONS (3)
  - Lethargy [Not Recovered/Not Resolved]
  - Fatigue [Not Recovered/Not Resolved]
  - Heart rate irregular [Not Recovered/Not Resolved]

NARRATIVE: CASE EVENT DATE: 20151221
